FAERS Safety Report 13709697 (Version 2)
Quarter: 2017Q3

REPORT INFORMATION
  Report Type: Spontaneous
  Country: US (occurrence: US)
  Receive Date: 20170703
  Receipt Date: 20170721
  Transmission Date: 20171127
  Serious: No
  Sender: FDA-Public Use
  Company Number: US-PHARMING GROUP N.V.-PHAUS2017000087

PATIENT

DRUGS (6)
  1. RUCONEST [Suspect]
     Active Substance: HUMAN C1-ESTERASE INHIBITOR
     Dosage: UNK
     Route: 065
  2. DANAZOL. [Concomitant]
     Active Substance: DANAZOL
     Indication: HEREDITARY ANGIOEDEMA
     Dosage: 100 MG, BID, 6 DAYS OF 100 MG
     Route: 065
  3. RUCONEST [Suspect]
     Active Substance: HUMAN C1-ESTERASE INHIBITOR
     Indication: HEREDITARY ANGIOEDEMA
     Dosage: 4200 IU, UNK
     Route: 065
     Dates: start: 20161115
  4. CINRYZE [Concomitant]
     Active Substance: HUMAN C1-ESTERASE INHIBITOR
     Dosage: 2000 IU, UNK
     Route: 065
  5. CINRYZE [Concomitant]
     Active Substance: HUMAN C1-ESTERASE INHIBITOR
     Indication: HEREDITARY ANGIOEDEMA
     Dosage: 1500 IU, UNK
     Route: 042
  6. FIRAZYR [Concomitant]
     Active Substance: ICATIBANT ACETATE
     Indication: HEREDITARY ANGIOEDEMA
     Dosage: 30 MG, PRN
     Route: 058

REACTIONS (3)
  - Erythema [Recovered/Resolved]
  - Urticaria [Recovered/Resolved]
  - Pruritus [Recovered/Resolved]

NARRATIVE: CASE EVENT DATE: 20141115
